FAERS Safety Report 6483055-2 (Version None)
Quarter: 2009Q4

REPORT INFORMATION
  Report Type: 
  Country: None (occurrence: None)
  Receive Date: 20091123
  Receipt Date: 20090814
  Transmission Date: 20100525
  Serious: No
  Sender: FDA-Public Use
  Company Number: 8050568

PATIENT
  Age: 23 Year
  Sex: Female
  Weight: 48.08 kg

DRUGS (5)
  1. CIMZIA [Suspect]
     Indication: CROHN'S DISEASE
     Dosage: 400 MG SC
     Route: 058
     Dates: start: 20090601, end: 20090701
  2. CIMZIA [Suspect]
     Indication: RHEUMATOID ARTHRITIS
     Dosage: 400 MG SC
     Route: 058
     Dates: start: 20090601, end: 20090701
  3. CIMZIA [Suspect]
     Dosage: 400 MG SC
     Route: 058
     Dates: start: 20090801, end: 20090807
  4. PENTASA [Concomitant]
  5. XANAX [Concomitant]

REACTIONS (4)
  - CONTUSION [None]
  - FATIGUE [None]
  - OEDEMA PERIPHERAL [None]
  - PAIN [None]
